FAERS Safety Report 7322060-0 (Version None)
Quarter: 2011Q1

REPORT INFORMATION
  Report Type: 
  Country: None (occurrence: None)
  Receive Date: 20110228
  Receipt Date: 20110215
  Transmission Date: 20110831
  Serious: Yes (Other)
  Sender: FDA-Public Use
  Company Number: PHHY2011JP13555

PATIENT
  Sex: Male
  Weight: 80 kg

DRUGS (6)
  1. PROPETO [Concomitant]
     Indication: DERMATITIS ATOPIC
     Dosage: 5 MG, UNK
     Route: 061
     Dates: start: 20090911
  2. FLOMAX [Concomitant]
     Dosage: 300 MG, UNK
     Route: 048
     Dates: start: 20090917, end: 20090920
  3. NEORAL [Suspect]
     Indication: DERMATITIS ATOPIC
     Dosage: 250 MG, UNK
     Route: 048
     Dates: start: 20090914, end: 20090915
  4. ANTEBATE [Concomitant]
     Indication: DERMATITIS ATOPIC
     Dosage: 5 MG, UNK
     Route: 061
  5. LOCOID [Concomitant]
     Indication: DERMATITIS ATOPIC
     Dosage: 1 MG, UNK
     Route: 061
     Dates: start: 20090911
  6. ALLELOCK [Concomitant]
     Indication: DERMATITIS ATOPIC
     Dosage: 10 MG, UNK
     Route: 048
     Dates: start: 20090911

REACTIONS (2)
  - STAPHYLOCOCCAL SKIN INFECTION [None]
  - WHITE BLOOD CELL COUNT INCREASED [None]
